FAERS Safety Report 8051069-7 (Version None)
Quarter: 2012Q1

REPORT INFORMATION
  Report Type: 
  Country: None (occurrence: None)
  Receive Date: 20120117
  Receipt Date: 20120111
  Transmission Date: 20120608
  Serious: Yes (Other)
  Sender: FDA-Public Use
  Company Number: PHHY2012AU002929

PATIENT
  Sex: Female

DRUGS (1)
  1. ZOLEDRONOC ACID [Suspect]
     Dosage: 5 MG, UNK
     Route: 042
     Dates: start: 20101221

REACTIONS (5)
  - PAIN [None]
  - MUSCLE SPASMS [None]
  - BACK PAIN [None]
  - CEREBROVASCULAR ACCIDENT [None]
  - SENSATION OF HEAVINESS [None]
